FAERS Safety Report 5630765-2 (Version None)
Quarter: 2008Q1

REPORT INFORMATION
  Report Type: 
  Country: None (occurrence: None)
  Receive Date: 20080219
  Receipt Date: 20080211
  Transmission Date: 20080703
  Serious: Yes (Hospitalization, Disabling)
  Sender: FDA-Public Use
  Company Number: US-ASTRAZENECA-2007UW12604

PATIENT
  Age: 455 Month
  Sex: Male
  Weight: 143.2 kg

DRUGS (3)
  1. SEROQUEL [Suspect]
     Indication: SCHIZOPHRENIA
     Dosage: 200-800 MG
     Route: 048
     Dates: start: 19990901, end: 20060401
  2. RISPERDAL [Concomitant]
     Dates: start: 19990805, end: 20000228
  3. ABILIFY [Concomitant]
     Dates: start: 20050401

REACTIONS (3)
  - DIABETES MELLITUS [None]
  - MENTAL DISORDER [None]
  - OBESITY [None]
